FAERS Safety Report 4447234-8 (Version None)
Quarter: 2004Q3

REPORT INFORMATION
  Report Type: 
  Country: None (occurrence: None)
  Receive Date: 20040908
  Receipt Date: 20040908
  Transmission Date: 20050211
  Serious: Yes (Hospitalization)
  Sender: FDA-Public Use
  Company Number: None

PATIENT
  Age: 81 Year
  Sex: Male

DRUGS (6)
  1. PERCOLIDE [Suspect]
     Indication: PARKINSON'S DISEASE
     Dosage: 0.25 MG TID AND 0.5 MG QD
     Dates: start: 19990301
  2. OMEPRAZOLE [Concomitant]
  3. ZOCOR [Concomitant]
  4. FOSINOPRIL SODIUM [Concomitant]
  5. METOPROLOL [Concomitant]
  6. MAXZIDE [Concomitant]

REACTIONS (1)
  - HALLUCINATION [None]
